FAERS Safety Report 5985323-7 (Version None)
Quarter: 2008Q4

REPORT INFORMATION
  Report Type: 
  Country: None (occurrence: None)
  Receive Date: 20081208
  Receipt Date: 20080317
  Transmission Date: 20090506
  Serious: No
  Sender: FDA-Public Use
  Company Number: US-AMGEN-KDL269443

PATIENT
  Sex: Female
  Weight: 89.4 kg

DRUGS (4)
  1. ENBREL [Suspect]
     Indication: RHEUMATOID ARTHRITIS
     Route: 058
     Dates: start: 20000101
  2. METHOTREXATE [Concomitant]
     Route: 048
     Dates: start: 20000101
  3. FOSAMAX [Concomitant]
     Dates: start: 20000101
  4. PRILOSEC [Concomitant]
     Dates: start: 20070101

REACTIONS (2)
  - CATARACT [None]
  - INJECTION SITE HAEMATOMA [None]
